FAERS Safety Report 11100290 (Version 1)
Quarter: 2015Q2

REPORT INFORMATION
  Report Type: Spontaneous
  Country: US (occurrence: None)
  Receive Date: 20150507
  Receipt Date: 20150507
  Transmission Date: 20150821
  Serious: Yes (Disabling, Other)
  Sender: FDA-Public Use
  Company Number: None

PATIENT
  Age: 57 Year
  Sex: Female
  Weight: 58.51 kg

DRUGS (18)
  1. PREDNISONE. [Concomitant]
     Active Substance: PREDNISONE
  2. LISINOPRIL. [Concomitant]
     Active Substance: LISINOPRIL
  3. FENOFIBRATE. [Concomitant]
     Active Substance: FENOFIBRATE
  4. POTASSIUM CITRATE. [Concomitant]
     Active Substance: POTASSIUM CITRATE
  5. MULTIPLE VITAMIN [Concomitant]
     Active Substance: VITAMINS
  6. CIPRO [Suspect]
     Active Substance: CIPROFLOXACIN HYDROCHLORIDE
     Indication: RENAL STONE REMOVAL
     Dates: start: 20150410, end: 20150414
  7. PROGESTERONE. [Concomitant]
     Active Substance: PROGESTERONE
  8. CIPRO [Suspect]
     Active Substance: CIPROFLOXACIN HYDROCHLORIDE
     Indication: INFECTION PROPHYLAXIS
     Dates: start: 20150410, end: 20150414
  9. SYNTHROID [Concomitant]
     Active Substance: LEVOTHYROXINE SODIUM
  10. ZETIA [Concomitant]
     Active Substance: EZETIMIBE
  11. ESTRADIOL. [Concomitant]
     Active Substance: ESTRADIOL
  12. VITAMIN B12 [Concomitant]
     Active Substance: CYANOCOBALAMIN
  13. METFORMIN [Concomitant]
     Active Substance: METFORMIN HYDROCHLORIDE
  14. IVIG TREATEMENTS [Concomitant]
  15. AMBIEN [Concomitant]
     Active Substance: ZOLPIDEM TARTRATE
  16. PERCOCET [Concomitant]
     Active Substance: ACETAMINOPHEN\OXYCODONE HYDROCHLORIDE
  17. D2 [Concomitant]
  18. MAGNESIUM [Concomitant]
     Active Substance: MAGNESIUM

REACTIONS (6)
  - Neck pain [None]
  - Tendon rupture [None]
  - Back pain [None]
  - Quality of life decreased [None]
  - Arthralgia [None]
  - Musculoskeletal pain [None]

NARRATIVE: CASE EVENT DATE: 20150413
